FAERS Safety Report 16132873 (Version 1)
Quarter: 2019Q1

REPORT INFORMATION
  Report Type: Spontaneous
  Country: FR (occurrence: FR)
  Receive Date: 20190329
  Receipt Date: 20190329
  Transmission Date: 20190418
  Serious: Yes (Other)
  Sender: FDA-Public Use
  Company Number: FR-SA-2019SA018110

PATIENT
  Age: 31 Year
  Sex: Female

DRUGS (1)
  1. LOVENOX [Suspect]
     Active Substance: ENOXAPARIN SODIUM
     Indication: FACTOR V DEFICIENCY
     Dosage: 4000 IU, QD
     Route: 058
     Dates: start: 20190102, end: 20190111

REACTIONS (4)
  - Pruritus [Recovered/Resolved]
  - Angioedema [Recovered/Resolved]
  - Dermatitis allergic [Unknown]
  - Rash [Recovered/Resolved]

NARRATIVE: CASE EVENT DATE: 20190111
